FAERS Safety Report 7151006-3 (Version None)
Quarter: 2010Q4

REPORT INFORMATION
  Report Type: 
  Country: None (occurrence: None)
  Receive Date: 20101210
  Receipt Date: 20101203
  Transmission Date: 20110411
  Serious: Yes (Other)
  Sender: FDA-Public Use
  Company Number: A0898799A

PATIENT
  Sex: Male

DRUGS (3)
  1. TRIAMTERENE AND HYDROCHLOROTHIAZIDE [Suspect]
  2. CLONIDINE [Suspect]
  3. ATENOLOL [Suspect]

REACTIONS (1)
  - CEREBROVASCULAR ACCIDENT [None]
